FAERS Safety Report 9943107 (Version 2)
Quarter: 2014Q1

REPORT INFORMATION
  Report Type: Spontaneous
  Country: US (occurrence: CA)
  Receive Date: 20140303
  Receipt Date: 20140303
  Transmission Date: 20141002
  Serious: Yes (Hospitalization)
  Sender: FDA-Public Use
  Company Number: US-GLAXOSMITHKLINE-A0864158A

PATIENT
  Age: 70 Year
  Sex: Male
  Weight: 93.2 kg

DRUGS (1)
  1. AVANDIA [Suspect]
     Indication: DIABETES MELLITUS
     Dosage: 4MG PER DAY
     Route: 048
     Dates: start: 200111, end: 200811

REACTIONS (4)
  - Transient ischaemic attack [Recovering/Resolving]
  - Myocardial infarction [Unknown]
  - Coronary artery bypass [Unknown]
  - Cerebrovascular accident [Unknown]
